FAERS Safety Report 4293942-1 (Version None)
Quarter: 2004Q1

REPORT INFORMATION
  Report Type: 
  Country: None (occurrence: None)
  Receive Date: 20040212
  Receipt Date: 20040212
  Transmission Date: 20041129
  Serious: Yes (Disabling)
  Sender: FDA-Public Use
  Company Number: None

PATIENT
  Age: 49 Year
  Sex: Male
  Weight: 70.3075 kg

DRUGS (1)
  1. ZICAM [Suspect]
     Dosage: 1 PUMP 2 TO 4 HOU NASAL
     Route: 045
     Dates: start: 20030304, end: 20030305

REACTIONS (2)
  - AGEUSIA [None]
  - ANOSMIA [None]
